FAERS Safety Report 16726670 (Version 1)
Quarter: 2019Q3

REPORT INFORMATION
  Report Type: Spontaneous
  Country: US (occurrence: US)
  Receive Date: 20190821
  Receipt Date: 20190821
  Transmission Date: 20191005
  Serious: Yes (Other)
  Sender: FDA-Public Use
  Company Number: US-TEVA-2019-US-1093844

PATIENT
  Sex: Male

DRUGS (1)
  1. GLIPIZIDE ER TABLET [Suspect]
     Active Substance: GLIPIZIDE
     Dosage: EXTENDED RELEASE
     Route: 065

REACTIONS (1)
  - Blood glucose increased [Unknown]

NARRATIVE: CASE EVENT DATE: 20190730
